FAERS Safety Report 8576667 (Version 2)
Quarter: 2013Q2

REPORT INFORMATION
  Report Type: Report from Study
  Country: DE (occurrence: DE)
  Receive Date: 20120523
  Receipt Date: 20130410
  Transmission Date: 20140414
  Serious: Yes (Hospitalization)
  Sender: FDA-Public Use
  Company Number: DE-ROCHE-1068762

PATIENT
  Age: 52 Year
  Sex: Female
  Weight: 67 kg

DRUGS (5)
  1. PACLITAXEL [Suspect]
     Indication: BREAST CANCER
     Dosage: LAST DOSE PRIOR TO SAE 24 APR 2012. TEMPORARILY INTERRUPTED.
     Route: 042
     Dates: start: 20120111, end: 20120430
  2. MYOCET [Suspect]
     Indication: BREAST CANCER
     Dosage: LAST DOSE PRIOR TO SAE 24 APR 2012. TEMPORARILY INTERRUPTED.
     Route: 042
     Dates: start: 20120111, end: 20120430
  3. CARBOPLATIN [Suspect]
     Indication: BREAST CANCER
     Dosage: AUC-2, LAST DOSE PRIOR TO SAE 24 APR 2012. TEMPORARILY INTERRUPTED.
     Route: 042
     Dates: start: 20120111, end: 20120430
  4. TRASTUZUMAB [Suspect]
     Indication: BREAST CANCER
     Dosage: LAST DOSE PRIOR TO SAE 10 MAY 2012.
     Route: 042
     Dates: start: 20120111
  5. LAPATINIB [Suspect]
     Indication: BREAST CANCER
     Dosage: PERMANENTLY DISCONTINUED.
     Route: 048
     Dates: start: 20120111, end: 20120319

REACTIONS (1)
  - General physical health deterioration [Recovered/Resolved]
